FAERS Safety Report 4837267-1 (Version None)
Quarter: 2005Q4

REPORT INFORMATION
  Report Type: 
  Country: None (occurrence: None)
  Receive Date: 20051122
  Receipt Date: 20051115
  Transmission Date: 20060501
  Serious: Yes (Hospitalization)
  Sender: FDA-Public Use
  Company Number: 200513659GDS

PATIENT
  Age: 44 Year
  Sex: Male

DRUGS (3)
  1. VIVANZA (VARDENAFIL) [Suspect]
     Indication: ERECTILE DYSFUNCTION
     Dosage: 20 MG, TOTAL DAILY, ORAL
     Route: 048
     Dates: start: 20050924
  2. COMBIVIR [Concomitant]
  3. KALETRA [Concomitant]

REACTIONS (6)
  - DIABETES MELLITUS [None]
  - HYPERGLYCAEMIA [None]
  - IATROGENIC INJURY [None]
  - LIVER DISORDER [None]
  - POLYDIPSIA [None]
  - POLYURIA [None]
